FAERS Safety Report 16062577 (Version 13)
Quarter: 2025Q2

REPORT INFORMATION
  Report Type: Spontaneous
  Country: CA (occurrence: CA)
  Receive Date: 20190312
  Receipt Date: 20250410
  Transmission Date: 20250716
  Serious: Yes (Hospitalization, Disabling, Other)
  Sender: PFIZER
  Company Number: CA-PFIZER INC-2019102192

PATIENT
  Age: 39 Year
  Sex: Female
  Weight: 119.3 kg

DRUGS (90)
  1. ALPRAZOLAM [Suspect]
     Active Substance: ALPRAZOLAM
  2. ALPRAZOLAM [Suspect]
     Active Substance: ALPRAZOLAM
  3. ALPRAZOLAM [Suspect]
     Active Substance: ALPRAZOLAM
     Route: 048
  4. ALPRAZOLAM [Suspect]
     Active Substance: ALPRAZOLAM
  5. ALPRAZOLAM [Suspect]
     Active Substance: ALPRAZOLAM
  6. ALPRAZOLAM [Suspect]
     Active Substance: ALPRAZOLAM
  7. AZITHROMYCIN [Suspect]
     Active Substance: AZITHROMYCIN
  8. CIPROFLOXACIN [Suspect]
     Active Substance: CIPROFLOXACIN
     Indication: Nasopharyngitis
     Dosage: 500 MG, 1 EVERY 1 DAY
  9. PIROXICAM [Suspect]
     Active Substance: PIROXICAM
  10. PIROXICAM [Suspect]
     Active Substance: PIROXICAM
  11. PIROXICAM [Suspect]
     Active Substance: PIROXICAM
  12. PIROXICAM [Suspect]
     Active Substance: PIROXICAM
     Route: 066
  13. SERTRALINE HYDROCHLORIDE [Suspect]
     Active Substance: SERTRALINE HYDROCHLORIDE
  14. SERTRALINE HYDROCHLORIDE [Suspect]
     Active Substance: SERTRALINE HYDROCHLORIDE
     Route: 048
  15. SERTRALINE HYDROCHLORIDE [Suspect]
     Active Substance: SERTRALINE HYDROCHLORIDE
  16. SERTRALINE HYDROCHLORIDE [Suspect]
     Active Substance: SERTRALINE HYDROCHLORIDE
  17. SERTRALINE HYDROCHLORIDE [Suspect]
     Active Substance: SERTRALINE HYDROCHLORIDE
  18. SERTRALINE HYDROCHLORIDE [Suspect]
     Active Substance: SERTRALINE HYDROCHLORIDE
     Route: 048
  19. SERTRALINE HYDROCHLORIDE [Suspect]
     Active Substance: SERTRALINE HYDROCHLORIDE
     Route: 048
  20. ZOLOFT [Suspect]
     Active Substance: SERTRALINE HYDROCHLORIDE
  21. ABILIFY [Suspect]
     Active Substance: ARIPIPRAZOLE
  22. ABILIFY [Suspect]
     Active Substance: ARIPIPRAZOLE
  23. PAROXETINE HYDROCHLORIDE [Suspect]
     Active Substance: PAROXETINE HYDROCHLORIDE
     Route: 066
  24. PAROXETINE HYDROCHLORIDE [Suspect]
     Active Substance: PAROXETINE HYDROCHLORIDE
  25. PAROXETINE HYDROCHLORIDE [Suspect]
     Active Substance: PAROXETINE HYDROCHLORIDE
  26. PAROXETINE HYDROCHLORIDE [Suspect]
     Active Substance: PAROXETINE HYDROCHLORIDE
     Route: 066
  27. PAROXETINE HYDROCHLORIDE [Suspect]
     Active Substance: PAROXETINE HYDROCHLORIDE
  28. PAROXETINE HYDROCHLORIDE [Suspect]
     Active Substance: PAROXETINE HYDROCHLORIDE
  29. PAROXETINE HYDROCHLORIDE [Suspect]
     Active Substance: PAROXETINE HYDROCHLORIDE
  30. PAROXETINE HYDROCHLORIDE [Suspect]
     Active Substance: PAROXETINE HYDROCHLORIDE
  31. PAROXETINE HYDROCHLORIDE [Suspect]
     Active Substance: PAROXETINE HYDROCHLORIDE
     Route: 066
  32. PAROXETINE HYDROCHLORIDE [Suspect]
     Active Substance: PAROXETINE HYDROCHLORIDE
     Route: 066
  33. SEROQUEL [Suspect]
     Active Substance: QUETIAPINE FUMARATE
  34. WELLBUTRIN [Suspect]
     Active Substance: BUPROPION HYDROCHLORIDE
     Route: 066
  35. WELLBUTRIN [Suspect]
     Active Substance: BUPROPION HYDROCHLORIDE
     Route: 066
  36. WELLBUTRIN [Suspect]
     Active Substance: BUPROPION HYDROCHLORIDE
  37. WELLBUTRIN [Suspect]
     Active Substance: BUPROPION HYDROCHLORIDE
  38. PIROXICAM [Suspect]
     Active Substance: PIROXICAM
     Route: 066
  39. BUPROPION [Suspect]
     Active Substance: BUPROPION
  40. BUPROPION [Suspect]
     Active Substance: BUPROPION
  41. PAROXETINE [Suspect]
     Active Substance: PAROXETINE
  42. QUETIAPINE FUMARATE [Suspect]
     Active Substance: QUETIAPINE FUMARATE
  43. QUETIAPINE FUMARATE [Suspect]
     Active Substance: QUETIAPINE FUMARATE
     Dosage: 25 MG, 2X/DAY
     Route: 048
  44. QUETIAPINE FUMARATE [Suspect]
     Active Substance: QUETIAPINE FUMARATE
     Dosage: 1000 MG, 1 EVERY 24HOURS
  45. QUETIAPINE FUMARATE [Suspect]
     Active Substance: QUETIAPINE FUMARATE
  46. QUETIAPINE FUMARATE [Suspect]
     Active Substance: QUETIAPINE FUMARATE
     Route: 048
  47. QUETIAPINE FUMARATE [Suspect]
     Active Substance: QUETIAPINE FUMARATE
     Dosage: 25 MG, 2X/DAY
     Route: 048
  48. QUETIAPINE FUMARATE [Suspect]
     Active Substance: QUETIAPINE FUMARATE
     Indication: Schizophrenia
     Route: 048
  49. QUETIAPINE FUMARATE [Suspect]
     Active Substance: QUETIAPINE FUMARATE
     Dosage: 25 MG, 2X/DAY
  50. QUETIAPINE FUMARATE [Suspect]
     Active Substance: QUETIAPINE FUMARATE
  51. QUETIAPINE FUMARATE [Suspect]
     Active Substance: QUETIAPINE FUMARATE
     Dosage: 1000 MG, 1 EVERY 24HOURS
     Route: 048
  52. QUETIAPINE FUMARATE [Suspect]
     Active Substance: QUETIAPINE FUMARATE
     Dosage: 100 MG, 1 EVERY 24HOURS
     Route: 048
  53. QUETIAPINE FUMARATE [Suspect]
     Active Substance: QUETIAPINE FUMARATE
     Route: 016
  54. QUETIAPINE [Suspect]
     Active Substance: QUETIAPINE
     Indication: Schizophrenia
     Dosage: 25 MG, 2 EVERY 1 DAY
     Route: 048
  55. QUETIAPINE [Suspect]
     Active Substance: QUETIAPINE
     Dosage: 25 MG, 2 EVERY 1 DAY
     Route: 048
  56. QUETIAPINE [Suspect]
     Active Substance: QUETIAPINE
     Dosage: 100MG, 1X/DAY
     Route: 048
  57. QUETIAPINE [Suspect]
     Active Substance: QUETIAPINE
     Dosage: 100MG, 1X/DAY
     Route: 048
  58. QUETIAPINE [Suspect]
     Active Substance: QUETIAPINE
     Route: 048
  59. QUETIAPINE [Suspect]
     Active Substance: QUETIAPINE
  60. QUETIAPINE [Suspect]
     Active Substance: QUETIAPINE
  61. QUETIAPINE [Suspect]
     Active Substance: QUETIAPINE
  62. QUETIAPINE [Suspect]
     Active Substance: QUETIAPINE
     Route: 016
  63. QUETIAPINE [Suspect]
     Active Substance: QUETIAPINE
  64. QUETIAPINE [Suspect]
     Active Substance: QUETIAPINE
     Dosage: 1000 MG
  65. QUETIAPINE [Suspect]
     Active Substance: QUETIAPINE
     Dosage: 25 MG, 2 EVERY 1 DAY
     Route: 048
  66. QUETIAPINE [Suspect]
     Active Substance: QUETIAPINE
     Dosage: 100 MG, 1X/DAY
     Route: 048
  67. QUETIAPINE [Suspect]
     Active Substance: QUETIAPINE
  68. QUETIAPINE [Suspect]
     Active Substance: QUETIAPINE
     Route: 048
  69. QUETIAPINE [Suspect]
     Active Substance: QUETIAPINE
     Indication: Schizophrenia
  70. QUETIAPINE [Suspect]
     Active Substance: QUETIAPINE
     Dosage: 100 MG, 1 EVERY 1 DAY
     Route: 048
  71. QUETIAPINE [Suspect]
     Active Substance: QUETIAPINE
     Route: 048
  72. WELLBUTRIN XL [Suspect]
     Active Substance: BUPROPION HYDROCHLORIDE
  73. WELLBUTRIN XL [Suspect]
     Active Substance: BUPROPION HYDROCHLORIDE
     Route: 066
  74. CIPROFLOXACIN HYDROCHLORIDE [Suspect]
     Active Substance: CIPROFLOXACIN HYDROCHLORIDE
     Dosage: 500 MG, 1X/DAY
  75. CIPROFLOXACIN HYDROCHLORIDE [Suspect]
     Active Substance: CIPROFLOXACIN HYDROCHLORIDE
     Dosage: 500 MG, 1X/DAY
  76. CIPROFLOXACIN HYDROCHLORIDE [Suspect]
     Active Substance: CIPROFLOXACIN HYDROCHLORIDE
  77. CIPROFLOXACIN [Suspect]
     Active Substance: CIPROFLOXACIN
     Indication: Nasopharyngitis
  78. CIPROFLOXACIN [Suspect]
     Active Substance: CIPROFLOXACIN
     Dosage: 500 MG, 1X/DAY
  79. CIPROFLOXACIN [Suspect]
     Active Substance: CIPROFLOXACIN
     Dosage: 500 MG, 1X/DAY
  80. CIPROFLOXACIN [Suspect]
     Active Substance: CIPROFLOXACIN
     Dosage: 500 MG, 1X/DAY
  81. CIPROFLOXACIN [Suspect]
     Active Substance: CIPROFLOXACIN
  82. AZITHROMYCIN ANHYDROUS [Suspect]
     Active Substance: AZITHROMYCIN ANHYDROUS
  83. AMOXICILLIN [Concomitant]
     Active Substance: AMOXICILLIN
  84. RISPERIDONE [Concomitant]
     Active Substance: RISPERIDONE
  85. RISPERIDONE [Concomitant]
     Active Substance: RISPERIDONE
  86. RISPERIDONE [Concomitant]
     Active Substance: RISPERIDONE
  87. DIVALPROEX SODIUM [Concomitant]
     Active Substance: DIVALPROEX SODIUM
  88. ZYPREXA [Concomitant]
     Active Substance: OLANZAPINE
  89. AMOXICILLIN TRIHYDRATE [Concomitant]
     Active Substance: AMOXICILLIN
  90. SERTRALINE [Concomitant]
     Active Substance: SERTRALINE HYDROCHLORIDE
     Route: 048

REACTIONS (25)
  - Hallucinations, mixed [Not Recovered/Not Resolved]
  - Memory impairment [Not Recovered/Not Resolved]
  - Staphylococcal infection [Not Recovered/Not Resolved]
  - Thermal burn [Not Recovered/Not Resolved]
  - Toxicity to various agents [Not Recovered/Not Resolved]
  - Weight increased [Not Recovered/Not Resolved]
  - Wound [Not Recovered/Not Resolved]
  - Hallucination, auditory [Not Recovered/Not Resolved]
  - Hallucination, visual [Recovered/Resolved]
  - Impaired healing [Not Recovered/Not Resolved]
  - Blood creatinine increased [Not Recovered/Not Resolved]
  - Burning sensation [Not Recovered/Not Resolved]
  - Diarrhoea [Not Recovered/Not Resolved]
  - Flank pain [Not Recovered/Not Resolved]
  - Haematocrit decreased [Not Recovered/Not Resolved]
  - Haemoglobin decreased [Not Recovered/Not Resolved]
  - Hypertension [Not Recovered/Not Resolved]
  - Infection [Not Recovered/Not Resolved]
  - Nausea [Not Recovered/Not Resolved]
  - Obesity [Not Recovered/Not Resolved]
  - Renal impairment [Not Recovered/Not Resolved]
  - Renal disorder [Not Recovered/Not Resolved]
  - Wound complication [Not Recovered/Not Resolved]
  - Pain [Not Recovered/Not Resolved]
  - Off label use [Unknown]
